FAERS Safety Report 8297879-2 (Version None)
Quarter: 2012Q2

REPORT INFORMATION
  Report Type: 
  Country: None (occurrence: None)
  Receive Date: 20120419
  Receipt Date: 20120412
  Transmission Date: 20120825
  Serious: Yes (Disabling, Other)
  Sender: FDA-Public Use
  Company Number: JP-EISAI INC-E2020-09546-SPO-JP

PATIENT
  Age: 85 Year
  Sex: Female
  Weight: 38 kg

DRUGS (9)
  1. ARICEPT [Suspect]
     Indication: DEMENTIA
     Route: 048
     Dates: start: 20110721, end: 20110722
  2. DIOVAN [Concomitant]
     Route: 048
  3. SOLDEM 3AG [Concomitant]
     Route: 041
  4. MOTILIUM [Concomitant]
     Route: 048
  5. FRANDOL S [Concomitant]
  6. LEVOTHYROXINE SODIUM [Concomitant]
     Indication: HYPOTHYROIDISM
     Route: 048
  7. SULPIRIDE [Concomitant]
     Route: 048
  8. RABEPRAZOLE SODIUM [Concomitant]
     Route: 048
  9. SENNARIDE [Concomitant]
     Route: 048

REACTIONS (1)
  - VENTRICULAR TACHYCARDIA [None]
